FAERS Safety Report 10163759 (Version 1)
Quarter: 2014Q2

REPORT INFORMATION
  Report Type: Spontaneous
  Country: GB (occurrence: GB)
  Receive Date: 20140509
  Receipt Date: 20140509
  Transmission Date: 20141212
  Serious: Yes (Other)
  Sender: FDA-Public Use
  Company Number: GB-ABBVIE-14P-167-1236109-00

PATIENT
  Sex: Female

DRUGS (1)
  1. HUMIRA [Suspect]
     Indication: PRODUCT USED FOR UNKNOWN INDICATION
     Dates: start: 2012

REACTIONS (6)
  - Condition aggravated [Unknown]
  - Intestinal ulcer [Unknown]
  - Headache [Unknown]
  - Sinus headache [Unknown]
  - Pharyngitis [Unknown]
  - Sinusitis [Unknown]
